FAERS Safety Report 4952870-6 (Version None)
Quarter: 2006Q1

REPORT INFORMATION
  Report Type: 
  Country: None (occurrence: None)
  Receive Date: 20060324
  Receipt Date: 20060313
  Transmission Date: 20060701
  Serious: Yes (Other)
  Sender: FDA-Public Use
  Company Number: GB-JNJFOC-20041100461

PATIENT
  Sex: Female

DRUGS (1)
  1. TRAMACET [Suspect]
     Indication: HEADACHE
     Route: 048

REACTIONS (1)
  - DEAFNESS [None]
